FAERS Safety Report 8426272-4 (Version None)
Quarter: 2012Q2

REPORT INFORMATION
  Report Type: 
  Country: None (occurrence: None)
  Receive Date: 20120611
  Receipt Date: 20120606
  Transmission Date: 20120825
  Serious: Yes (Other)
  Sender: FDA-Public Use
  Company Number: US-SANOFI-AVENTIS-2012SA040395

PATIENT
  Age: 63 Year
  Sex: Male

DRUGS (2)
  1. LEUPROLIDE ACETATE [Suspect]
     Dosage: DEPOT INTRAMUSCULAR INJECTIONS EVERY 4 MONTHS
     Route: 030
  2. BICALUTAMIDE [Concomitant]
     Indication: ANTIANDROGEN THERAPY

REACTIONS (3)
  - TREATMENT FAILURE [None]
  - GRANULOMA [None]
  - PELVIC PAIN [None]
